FAERS Safety Report 21402238 (Version 1)
Quarter: 2022Q4

REPORT INFORMATION
  Report Type: Spontaneous
  Country: CA (occurrence: CA)
  Receive Date: 20221003
  Receipt Date: 20221003
  Transmission Date: 20230113
  Serious: Yes (Other)
  Sender: FDA-Public Use
  Company Number: CA-APOTEX-2022AP013623

PATIENT
  Age: 58 Year
  Sex: Female

DRUGS (1)
  1. KETOROLAC [Suspect]
     Active Substance: KETOROLAC TROMETHAMINE
     Indication: Osteoarthritis
     Dosage: UNK UNK, QD
     Route: 065

REACTIONS (3)
  - Erosive oesophagitis [Recovering/Resolving]
  - Obstruction gastric [Recovering/Resolving]
  - Gastrointestinal disorder [Recovering/Resolving]
